FAERS Safety Report 20888095 (Version 1)
Quarter: 2022Q2

REPORT INFORMATION
  Report Type: Spontaneous
  Country: US (occurrence: US)
  Receive Date: 20220529
  Receipt Date: 20220529
  Transmission Date: 20220720
  Serious: Yes (Death, Hospitalization, Other)
  Sender: FDA-Public Use
  Company Number: US-BRISTOL-MYERS SQUIBB COMPANY-2022-043803

PATIENT
  Age: 73 Year
  Sex: Male

DRUGS (1)
  1. POMALYST [Suspect]
     Active Substance: POMALIDOMIDE
     Indication: Plasma cell myeloma
     Dosage: 21/BO: 4MG, QD
     Route: 048
     Dates: start: 20210930, end: 20220513

REACTIONS (2)
  - COVID-19 [Fatal]
  - Shock [Fatal]

NARRATIVE: CASE EVENT DATE: 20220511
